FAERS Safety Report 5965265-3 (Version None)
Quarter: 2008Q4

REPORT INFORMATION
  Report Type: 
  Country: None (occurrence: None)
  Receive Date: 20081124
  Receipt Date: 20081124
  Transmission Date: 20090506
  Serious: Yes (Other)
  Sender: FDA-Public Use
  Company Number: None

PATIENT
  Age: 44 Year
  Sex: Female
  Weight: 65.318 kg

DRUGS (2)
  1. SERTRALINE [Suspect]
     Indication: ANGER
     Dosage: 50MG ONCE PER DAY PO (DURATION: ABOUT 2 1/2 WEEKS)
     Route: 048
     Dates: start: 20080915, end: 20081004
  2. SERTRALINE [Suspect]
     Indication: DEPRESSION
     Dosage: 50MG ONCE PER DAY PO (DURATION: ABOUT 2 1/2 WEEKS)
     Route: 048
     Dates: start: 20080915, end: 20081004

REACTIONS (4)
  - AGGRESSION [None]
  - ANGER [None]
  - IRRITABILITY [None]
  - PRODUCT QUALITY ISSUE [None]
